FAERS Safety Report 14441114 (Version 1)
Quarter: 2018Q1

REPORT INFORMATION
  Report Type: Report from Study
  Country: None (occurrence: US)
  Receive Date: 20180125
  Receipt Date: 20180125
  Transmission Date: 20180509
  Serious: Yes (Hospitalization)
  Sender: FDA-Public Use
  Company Number: US-ABBVIE-18P-163-2233475-00

PATIENT
  Age: 39 Year
  Sex: Male

DRUGS (2)
  1. MAVYRET [Suspect]
     Active Substance: GLECAPREVIR\PIBRENTASVIR
     Indication: PRODUCT USED FOR UNKNOWN INDICATION
     Route: 065
     Dates: end: 20180114
  2. MAVYRET [Suspect]
     Active Substance: GLECAPREVIR\PIBRENTASVIR
     Route: 065
     Dates: start: 20180117

REACTIONS (2)
  - Depression [Recovered/Resolved]
  - Drug dose omission [Recovered/Resolved]

NARRATIVE: CASE EVENT DATE: 20180115
